FAERS Safety Report 10472412 (Version 2)
Quarter: 2014Q4

REPORT INFORMATION
  Report Type: Spontaneous
  Country: US (occurrence: None)
  Receive Date: 20140922
  Receipt Date: 20141009
  Transmission Date: 20150528
  Serious: Yes (Life-Threatening, Other)
  Sender: FDA-Public Use
  Company Number: 2014EXPUS00240

PATIENT
  Age: 72 Year
  Sex: Female
  Weight: 65.5 kg

DRUGS (1)
  1. EXPAREL [Suspect]
     Active Substance: BUPIVACAINE
     Indication: POSTOPERATIVE ANALGESIA

REACTIONS (5)
  - Muscle rigidity [None]
  - Musculoskeletal disorder [None]
  - Seizure [None]
  - Respiratory arrest [None]
  - Feeling abnormal [None]
